FAERS Safety Report 7878304 (Version 2)
Quarter: 2013Q2

REPORT INFORMATION
  Report Type: Spontaneous
  Country: FR (occurrence: FR)
  Receive Date: 20110330
  Receipt Date: 20130617
  Transmission Date: 20140414
  Serious: Yes (Hospitalization, Other)
  Sender: FDA-Public Use
  Company Number: FR-GENZYME-FLUD-1000906

PATIENT
  Age: 76 Year
  Sex: Female

DRUGS (9)
  1. FLUDARA [Suspect]
     Indication: B-CELL LYMPHOMA
     Dosage: 35 MG, (3 TIMES PER WEEK)
     Route: 042
     Dates: start: 20100127, end: 20100610
  2. ENDOXAN [Suspect]
     Indication: B-CELL LYMPHOMA
     Dosage: 350 MG, (3 TIMES PER MONTH)
     Route: 042
     Dates: start: 20100127, end: 20100610
  3. MABTHERA [Suspect]
     Indication: B-CELL LYMPHOMA
     Dosage: 630 MG, UNK
     Route: 042
     Dates: start: 20100126, end: 20100920
  4. SOLUPRED [Suspect]
     Indication: INFECTION
     Dosage: 20 MG, BID
     Route: 048
  5. SOLUPRED [Suspect]
     Dosage: INCREASED DOSE
     Route: 065
  6. RAMIPRIL [Concomitant]
     Indication: PRODUCT USED FOR UNKNOWN INDICATION
     Dosage: 5 MG, UNK
  7. ACEBUTOLOL [Concomitant]
     Indication: PRODUCT USED FOR UNKNOWN INDICATION
     Dosage: 200 MG, UNK
  8. TAHOR [Concomitant]
     Indication: PRODUCT USED FOR UNKNOWN INDICATION
     Dosage: 200 MG, UNK
  9. PARIET [Concomitant]
     Indication: PRODUCT USED FOR UNKNOWN INDICATION
     Dosage: 10 MG, UNK

REACTIONS (3)
  - Bone marrow disorder [Unknown]
  - Pneumocystis jirovecii pneumonia [Unknown]
  - Myelodysplastic syndrome [Unknown]
